FAERS Safety Report 4624071-2 (Version None)
Quarter: 2005Q1

REPORT INFORMATION
  Report Type: 
  Country: None (occurrence: None)
  Receive Date: 20050331
  Receipt Date: 20050225
  Transmission Date: 20050727
  Serious: Yes (Life-Threatening, Hospitalization, Other)
  Sender: FDA-Public Use
  Company Number: GB-BRISTOL-MYERS SQUIBB COMPANY-12878955

PATIENT
  Age: 17 Year
  Sex: Male
  Weight: 44 kg

DRUGS (7)
  1. REYATAZ [Suspect]
     Indication: HIV INFECTION
     Route: 048
     Dates: start: 20050223, end: 20050223
  2. ACYCLOVIR [Concomitant]
     Indication: HERPES ZOSTER
     Route: 048
     Dates: start: 20050102, end: 20050107
  3. TENOFOVIR [Concomitant]
     Route: 048
     Dates: start: 20050223
  4. EMTRICITABINE [Concomitant]
     Route: 048
     Dates: start: 20050223
  5. RITONAVIR [Concomitant]
     Route: 048
     Dates: start: 20050223
  6. DAPSONE [Concomitant]
     Indication: PNEUMOCYSTIS JIROVECI PNEUMONIA
     Route: 048
     Dates: start: 20050131
  7. CIPROFLOXACIN [Concomitant]
     Route: 048
     Dates: start: 20050201

REACTIONS (3)
  - AGITATION [None]
  - PRURITUS [None]
  - SUICIDAL IDEATION [None]
